FAERS Safety Report 16590494 (Version 1)
Quarter: 2019Q3

REPORT INFORMATION
  Report Type: Spontaneous
  Country: US (occurrence: US)
  Receive Date: 20190717
  Receipt Date: 20190717
  Transmission Date: 20191004
  Serious: Yes (Life-Threatening)
  Sender: FDA-Public Use
  Company Number: None

PATIENT
  Age: 69 Year
  Weight: 96.75 kg

DRUGS (12)
  1. VALIUM [Concomitant]
     Active Substance: DIAZEPAM
  2. MAGNESIUM [Concomitant]
     Active Substance: MAGNESIUM
  3. NIACIN. [Concomitant]
     Active Substance: NIACIN
  4. E [Concomitant]
  5. OMEGA [Concomitant]
     Active Substance: CONVALLARIA MAJALIS\CRATAEGUS LAEVIGATA LEAF\PROXYPHYLLINE
  6. VITAMIN D3 [Concomitant]
     Active Substance: CHOLECALCIFEROL
  7. GABAPENTIN. [Suspect]
     Active Substance: GABAPENTIN
     Indication: ANXIETY
     Dosage: ?          QUANTITY:2 CAPSULE(S);?
     Route: 048
     Dates: start: 20190507, end: 20190619
  8. MULTIPLE [Concomitant]
  9. CHARCOAL [Concomitant]
     Active Substance: ACTIVATED CHARCOAL
  10. HYDROCODINE [Concomitant]
  11. C [Concomitant]
  12. VITAMIN B12 [Concomitant]
     Active Substance: CYANOCOBALAMIN

REACTIONS (8)
  - Anxiety [None]
  - Speech disorder [None]
  - Asthenia [None]
  - Stress [None]
  - Pain of skin [None]
  - Paraesthesia [None]
  - Fatigue [None]
  - Pneumonia [None]

NARRATIVE: CASE EVENT DATE: 20190619
